FAERS Safety Report 7861275-X (Version None)
Quarter: 2011Q4

REPORT INFORMATION
  Report Type: 
  Country: None (occurrence: None)
  Receive Date: 20111027
  Receipt Date: 20111025
  Transmission Date: 20120403
  Serious: Yes (Hospitalization)
  Sender: FDA-Public Use
  Company Number: US-VERTEX PHARMACEUTICALS INC.-AE-2011-002682

PATIENT
  Age: 49 Year
  Sex: Female

DRUGS (3)
  1. PEGASYS [Concomitant]
     Indication: HEPATITIS C
     Route: 058
     Dates: start: 20111007, end: 20111010
  2. INCIVEK [Suspect]
     Indication: HEPATITIS C
     Route: 048
     Dates: start: 20111007, end: 20111010
  3. RIBAVIRIN [Concomitant]
     Indication: HEPATITIS C
     Dates: start: 20111007, end: 20111010

REACTIONS (5)
  - NAUSEA [None]
  - INFLUENZA LIKE ILLNESS [None]
  - PANCREATITIS ACUTE [None]
  - VOMITING [None]
  - HEADACHE [None]
